FAERS Safety Report 9689830 (Version 2)
Quarter: 2013Q4

REPORT INFORMATION
  Report Type: Spontaneous
  Country: BR (occurrence: BR)
  Receive Date: 20131115
  Receipt Date: 20131115
  Transmission Date: 20140711
  Serious: Yes (Other)
  Sender: FDA-Public Use
  Company Number: BR-PFIZER INC-2013191438

PATIENT
  Sex: Female

DRUGS (4)
  1. GEODON [Suspect]
     Indication: BIPOLAR DISORDER
     Dosage: 40 MG, UNK
     Route: 048
     Dates: start: 2011, end: 20130624
  2. GEODON [Suspect]
     Indication: MOOD ALTERED
  3. RIVOTRIL [Concomitant]
     Dosage: UNK
     Dates: start: 2011
  4. FLUOXETINE [Concomitant]
     Dosage: UNK

REACTIONS (13)
  - Drug dependence [Not Recovered/Not Resolved]
  - Anxiety [Unknown]
  - Abnormal dreams [Unknown]
  - Dizziness [Unknown]
  - Vomiting [Unknown]
  - Abdominal pain [Unknown]
  - Drug withdrawal syndrome [Unknown]
  - Retching [Unknown]
  - Panic disorder [Unknown]
  - Coordination abnormal [Unknown]
  - Borderline personality disorder [Unknown]
  - Feeling of relaxation [Unknown]
  - Therapeutic response unexpected [Unknown]
